FAERS Safety Report 12396497 (Version 1)
Quarter: 2016Q2

REPORT INFORMATION
  Report Type: Spontaneous
  Country: US (occurrence: None)
  Receive Date: 20160523
  Receipt Date: 20160523
  Transmission Date: 20160815
  Serious: Yes (Life-Threatening, Hospitalization, Other)
  Sender: FDA-Public Use
  Company Number: None

PATIENT
  Age: 14 Year
  Sex: Male
  Weight: 46.72 kg

DRUGS (3)
  1. TYLENOL [Suspect]
     Active Substance: ACETAMINOPHEN
     Indication: PYREXIA
     Route: 030
     Dates: start: 20150802, end: 20150811
  2. MOTRIN [Suspect]
     Active Substance: IBUPROFEN
  3. TYLENOL [Suspect]
     Active Substance: ACETAMINOPHEN
     Indication: PAIN
     Route: 030
     Dates: start: 20150802, end: 20150811

REACTIONS (5)
  - Pneumonia mycoplasmal [None]
  - Penile blister [None]
  - Pneumonia [None]
  - Oral mucosal blistering [None]
  - Blister [None]

NARRATIVE: CASE EVENT DATE: 20150803
